FAERS Safety Report 18432007 (Version 3)
Quarter: 2021Q1

REPORT INFORMATION
  Report Type: Spontaneous
  Country: BR (occurrence: BR)
  Receive Date: 20201027
  Receipt Date: 20210111
  Transmission Date: 20210419
  Serious: No
  Sender: FDA-Public Use
  Company Number: BR-PFIZER INC-2020406840

PATIENT
  Sex: Female

DRUGS (1)
  1. SAYANA [Suspect]
     Active Substance: MEDROXYPROGESTERONE
     Dosage: 160 MG/ML

REACTIONS (4)
  - Drug dose omission by device [Unknown]
  - Injection site discomfort [Unknown]
  - Device occlusion [Unknown]
  - Injection site pain [Unknown]
